FAERS Safety Report 8935839 (Version 2)
Quarter: 2012Q4

REPORT INFORMATION
  Report Type: 
  Country: FR (occurrence: FR)
  Receive Date: 20121130
  Receipt Date: 20121210
  Transmission Date: 20130627
  Serious: Yes (Other)
  Sender: FDA-Public Use
  Company Number: FR-JNJFOC-20121112597

PATIENT
  Age: 66 Year
  Sex: Female
  Weight: 44 kg

DRUGS (7)
  1. XARELTO [Suspect]
     Indication: CEREBROVASCULAR ACCIDENT PROPHYLAXIS
     Route: 048
     Dates: start: 20121029, end: 20121112
  2. XARELTO [Suspect]
     Indication: ATRIAL FIBRILLATION
     Route: 048
     Dates: start: 20121029, end: 20121112
  3. CHEMOTHERAPEUTICS NOS [Concomitant]
     Route: 065
  4. DIGOXINE [Concomitant]
     Route: 065
  5. PROTON PUMP INHIBITORS [Concomitant]
     Route: 065
  6. CARDENSIEL [Concomitant]
     Route: 065
  7. CORDARONE [Concomitant]
     Route: 065

REACTIONS (2)
  - Purpura [Recovering/Resolving]
  - Diarrhoea [Unknown]
